FAERS Safety Report 13207089 (Version 1)
Quarter: 2017Q1

REPORT INFORMATION
  Report Type: Spontaneous
  Country: US (occurrence: US)
  Receive Date: 20170209
  Receipt Date: 20170209
  Transmission Date: 20170428
  Serious: Yes (Life-Threatening)
  Sender: FDA-Public Use
  Company Number: None

PATIENT
  Age: 64 Year
  Sex: Female
  Weight: 74.25 kg

DRUGS (6)
  1. SINGULAIR [Concomitant]
     Active Substance: MONTELUKAST SODIUM
  2. PAXIL [Concomitant]
     Active Substance: PAROXETINE HYDROCHLORIDE
  3. COQ 10 LIQUID [Concomitant]
  4. PREDISONE [Concomitant]
     Active Substance: PREDNISONE
  5. NUCALA [Suspect]
     Active Substance: MEPOLIZUMAB
     Indication: LUNG DISORDER
     Dosage: ?          OTHER FREQUENCY:MONTHLY;?
     Route: 042
     Dates: start: 20160308, end: 20160707
  6. ASTHMA MAINTAINENCE INHALERS [Concomitant]

REACTIONS (2)
  - Tendonitis [None]
  - Herpes zoster [None]

NARRATIVE: CASE EVENT DATE: 20170203
